FAERS Safety Report 6828149-4 (Version None)
Quarter: 2010Q3

REPORT INFORMATION
  Report Type: 
  Country: None (occurrence: None)
  Receive Date: 20100709
  Receipt Date: 20070130
  Transmission Date: 20110219
  Serious: No
  Sender: FDA-Public Use
  Company Number: US-PFIZER INC-2007008956

PATIENT
  Sex: Female
  Weight: 82.55 kg

DRUGS (5)
  1. CHANTIX [Suspect]
     Indication: EX-TOBACCO USER
     Dates: start: 20060119
  2. VOLMAX [Concomitant]
     Indication: ASTHMA
  3. ADVAIR DISKUS 100/50 [Concomitant]
  4. DOXYCYCLINE [Concomitant]
     Indication: LUNG INFECTION
  5. DOXYCYCLINE [Concomitant]
     Indication: PNEUMONITIS

REACTIONS (5)
  - ABNORMAL DREAMS [None]
  - FEELING ABNORMAL [None]
  - INITIAL INSOMNIA [None]
  - SINUS DISORDER [None]
  - SLEEP DISORDER [None]
